FAERS Safety Report 4427278-2 (Version None)
Quarter: 2004Q3

REPORT INFORMATION
  Report Type: 
  Country: None (occurrence: None)
  Receive Date: 20040813
  Receipt Date: 20040813
  Transmission Date: 20050211
  Serious: No
  Sender: FDA-Public Use
  Company Number: None

PATIENT
  Age: 59 Year
  Sex: Female
  Weight: 54.4316 kg

DRUGS (2)
  1. ZETIA [Suspect]
     Dosage: 1 PILL DAILY ORAL
     Route: 048
  2. MICARDIS [Suspect]
     Dosage: 1 PILL DAILY ORAL
     Route: 048

REACTIONS (5)
  - BURNING SENSATION [None]
  - ERYTHEMA [None]
  - ORAL DISCOMFORT [None]
  - ORAL MUCOSAL DISCOLOURATION [None]
  - PRURITUS [None]
